FAERS Safety Report 12600229 (Version 1)
Quarter: 2016Q3

REPORT INFORMATION
  Report Type: Spontaneous
  Country: US (occurrence: US)
  Receive Date: 20160727
  Receipt Date: 20160727
  Transmission Date: 20161109
  Serious: No
  Sender: FDA-Public Use
  Company Number: US-ENDO PHARMACEUTICALS INC.-2016-003465

PATIENT
  Age: 74 Year
  Sex: Male
  Weight: 58.57 kg

DRUGS (2)
  1. HYDROCODONE BITARTRATE / APAP ORAL SOLUTION 7.5MG/325MG PER 15ML [Suspect]
     Active Substance: ACETAMINOPHEN\HYDROCODONE BITARTRATE
     Indication: PAIN
     Dosage: ONE DOSE
     Route: 048
     Dates: start: 20160426, end: 20160426
  2. HYDROCODONE BITARTRATE / APAP ORAL SOLUTION 7.5MG/325MG PER 15ML [Suspect]
     Active Substance: ACETAMINOPHEN\HYDROCODONE BITARTRATE
     Indication: STOMATITIS

REACTIONS (4)
  - Oropharyngeal pain [Recovering/Resolving]
  - Underdose [Recovered/Resolved]
  - Burning sensation [Recovered/Resolved]
  - Oral pain [Recovering/Resolving]

NARRATIVE: CASE EVENT DATE: 20160426
